FAERS Safety Report 5218652-5 (Version None)
Quarter: 2007Q1

REPORT INFORMATION
  Report Type: 
  Country: None (occurrence: None)
  Receive Date: 20070122
  Receipt Date: 20070111
  Transmission Date: 20070707
  Serious: Yes (Hospitalization)
  Sender: FDA-Public Use
  Company Number: 230104M06FRA

PATIENT
  Age: 30 Year
  Sex: Male

DRUGS (1)
  1. REBIF [Suspect]
     Indication: MULTIPLE SCLEROSIS
     Dosage: 44 MCG, 3 IN 1 WEEKS, SUBCUTANEOUS
     Route: 058

REACTIONS (7)
  - GENERAL PHYSICAL HEALTH DETERIORATION [None]
  - ILL-DEFINED DISORDER [None]
  - INJECTION SITE DISCOLOURATION [None]
  - INJECTION SITE INDURATION [None]
  - INJECTION SITE PAIN [None]
  - INJECTION SITE REACTION [None]
  - PYREXIA [None]
